FAERS Safety Report 9710950 (Version 1)
Quarter: 2013Q4

REPORT INFORMATION
  Report Type: Spontaneous
  Country: US (occurrence: US)
  Receive Date: 20131126
  Receipt Date: 20131126
  Transmission Date: 20140711
  Serious: No
  Sender: FDA-Public Use
  Company Number: US-BRISTOL-MYERS SQUIBB COMPANY-19064898

PATIENT
  Age: 58 Year
  Sex: Female
  Weight: 136.05 kg

DRUGS (11)
  1. BYETTA [Suspect]
     Indication: DIABETES MELLITUS
     Route: 058
  2. METFORMIN [Concomitant]
  3. LISINOPRIL [Concomitant]
  4. NORVASC [Concomitant]
  5. MAGNESIUM [Concomitant]
     Dosage: 1DF=500 UNITS NOS
  6. BAYER ASPIRIN [Concomitant]
  7. VITAMIN C [Concomitant]
     Dosage: 1DF= 500 UNITS NOS
  8. VITAMIN E [Concomitant]
  9. VITAMIN B12 [Concomitant]
  10. MULTIVITAMIN [Concomitant]
  11. MELOXICAM [Concomitant]

REACTIONS (1)
  - Accidental overdose [Unknown]
